FAERS Safety Report 10415451 (Version 1)
Quarter: 2014Q3

REPORT INFORMATION
  Report Type: Spontaneous
  Country: US (occurrence: None)
  Receive Date: 20140827
  Receipt Date: 20140827
  Transmission Date: 20150326
  Serious: Yes (Hospitalization)
  Sender: FDA-Public Use
  Company Number: None

PATIENT
  Age: 66 Year
  Sex: Male
  Weight: 110.7 kg

DRUGS (1)
  1. SUCCINYLCHOLINE [Suspect]
     Active Substance: SUCCINYLCHOLINE
     Indication: SURGERY
     Route: 042
     Dates: start: 20140605, end: 20140606

REACTIONS (2)
  - Pseudocholinesterase deficiency [None]
  - Respiratory failure [None]

NARRATIVE: CASE EVENT DATE: 20140605
